FAERS Safety Report 8050637-6 (Version None)
Quarter: 2012Q1

REPORT INFORMATION
  Report Type: 
  Country: None (occurrence: None)
  Receive Date: 20120117
  Receipt Date: 20120117
  Transmission Date: 20120608
  Serious: Yes (Other)
  Sender: FDA-Public Use
  Company Number: None

PATIENT
  Age: 41 Year
  Sex: Female
  Weight: 56.699 kg

DRUGS (1)
  1. CLIMARA PRO [Suspect]
     Indication: ARTIFICIAL MENOPAUSE
     Dosage: 1 PATCH
     Route: 062
     Dates: start: 20081003, end: 20120116

REACTIONS (7)
  - PRODUCT ADHESION ISSUE [None]
  - INAPPROPRIATE SCHEDULE OF DRUG ADMINISTRATION [None]
  - HEADACHE [None]
  - PRODUCT QUALITY ISSUE [None]
  - MOOD SWINGS [None]
  - PALPITATIONS [None]
  - INSOMNIA [None]
